FAERS Safety Report 4964847-5 (Version None)
Quarter: 2006Q2

REPORT INFORMATION
  Report Type: 
  Country: None (occurrence: None)
  Receive Date: 20060406
  Receipt Date: 20060329
  Transmission Date: 20061013
  Serious: Yes (Other)
  Sender: FDA-Public Use
  Company Number: AU-GLAXOSMITHKLINE-B0418199A

PATIENT
  Age: 78 Year
  Sex: Female

DRUGS (4)
  1. PANADOL TABLETS [Suspect]
     Indication: ARTHRITIS
     Route: 048
  2. DILANTIN [Concomitant]
  3. NEURONTIN [Concomitant]
  4. EYE DROPS [Concomitant]

REACTIONS (1)
  - HEPATITIS [None]
